FAERS Safety Report 23222481 (Version 1)
Quarter: 2023Q4

REPORT INFORMATION
  Report Type: Spontaneous
  Country: BE (occurrence: None)
  Receive Date: 20231123
  Receipt Date: 20231123
  Transmission Date: 20240110
  Serious: Yes (Other)
  Sender: FDA-Public Use
  Company Number: BE-ROCHE-3446187

PATIENT
  Sex: Female

DRUGS (1)
  1. ALECENSA [Suspect]
     Active Substance: ALECTINIB HYDROCHLORIDE
     Indication: Non-small cell lung cancer
     Route: 065

REACTIONS (4)
  - Oedema [Recovered/Resolved]
  - Hepatotoxicity [Recovered/Resolved]
  - Liver function test increased [Unknown]
  - Oedema peripheral [Unknown]
